FAERS Safety Report 15394520 (Version 1)
Quarter: 2018Q3

REPORT INFORMATION
  Report Type: Spontaneous
  Country: FR (occurrence: FR)
  Receive Date: 20180918
  Receipt Date: 20180918
  Transmission Date: 20181010
  Serious: Yes (Other)
  Sender: FDA-Public Use
  Company Number: FR-TEVA-2018-FR-955539

PATIENT
  Age: 55 Year
  Sex: Female
  Weight: 59 kg

DRUGS (4)
  1. COLCHIMAX [Suspect]
     Active Substance: COLCHICINE\DICYCLOMINE HYDROCHLORIDE
     Indication: PERICARDITIS
     Dosage: 1 MILLIGRAM DAILY;
     Route: 048
     Dates: start: 20180731, end: 20180804
  2. ESOMEPRAZOLE [Suspect]
     Active Substance: ESOMEPRAZOLE
     Indication: GASTROOESOPHAGEAL REFLUX DISEASE
     Dosage: 1 DOSAGE FORMS DAILY;
     Route: 048
     Dates: start: 201807, end: 20180804
  3. FLECAINE [Concomitant]
     Active Substance: FLECAINIDE
     Indication: ARRHYTHMIA
     Dosage: 1 DOSAGE FORMS DAILY;
     Route: 048
     Dates: start: 20180131, end: 20180804
  4. ELIQUIS [Concomitant]
     Active Substance: APIXABAN
     Indication: ATRIAL FIBRILLATION
     Dosage: 2 DOSAGE FORMS DAILY;
     Route: 048
     Dates: start: 201807, end: 20180804

REACTIONS (3)
  - Gamma-glutamyltransferase increased [Recovering/Resolving]
  - Hepatocellular injury [Recovering/Resolving]
  - Blood alkaline phosphatase increased [Recovering/Resolving]

NARRATIVE: CASE EVENT DATE: 20180803
